FAERS Safety Report 9240895 (Version 1)
Quarter: 2013Q1

REPORT INFORMATION
  Report Type: Spontaneous
  Country: US (occurrence: None)
  Receive Date: 20121120
  Receipt Date: 20121120
  Transmission Date: 20140127
  Serious: No
  Sender: FDA-Public Use
  Company Number: 1000037330

PATIENT
  Age: 68 Year
  Sex: Female

DRUGS (13)
  1. VIIBRYD [Suspect]
     Indication: DEPRESSION
     Dosage: 20 MG (20 MG, 1 IN 1 D), ORAL
     Route: 048
     Dates: start: 201204
  2. NEXIUM (ESOMEPRAZOLE) (ESOMEPRAZOLE) [Concomitant]
  3. NEURONTIN (GABAPENTIN) (GABAPENTIN) [Concomitant]
  4. KLONOPIN (CLONAZEPAM) CLONAZEPAM) [Concomitant]
  5. CLARINEX (DESOLORATADINE) (DESOLARATADINE) [Concomitant]
  6. LOSARTAN (LOSARTAN) (LOSARTAN) [Concomitant]
  7. DYAZIDE (TRIAMTERENE, HYDROCHLOROTHIAZIDE) (TRIAMTERENE, HYDROCHLOROTHIAZIDE) [Concomitant]
  8. ENABLEX (DARIFENACIN) (DARIFENACIN) [Concomitant]
  9. SIMVASTATIN (SIMVASTATIN) (SIMVASTATIN) [Concomitant]
  10. GARLIC  (GARLIC) (GARLIC) [Concomitant]
  11. ASMANEX [Concomitant]
  12. VITAMIN D3 (COLECALCIFEROL) (COLECALCIFEROL) [Concomitant]
  13. VITAMIN B-12 (CYANOCOBALAMIN) (CYANOBALAMIIN) [Concomitant]

REACTIONS (6)
  - Lacrimation increased [None]
  - Ocular hyperaemia [None]
  - Vision blurred [None]
  - Periorbital oedema [None]
  - Abnormal sensation in eye [None]
  - Blepharitis [None]
